FAERS Safety Report 18494441 (Version 1)
Quarter: 2020Q4

REPORT INFORMATION
  Report Type: Spontaneous
  Country: US (occurrence: US)
  Receive Date: 20201112
  Receipt Date: 20201112
  Transmission Date: 20210114
  Serious: Yes (Death, Other)
  Sender: FDA-Public Use
  Company Number: US-ASTELLAS-2020US029500

PATIENT
  Age: 82 Year
  Sex: Female

DRUGS (1)
  1. MYRBETRIQ [Suspect]
     Active Substance: MIRABEGRON
     Indication: PRODUCT USED FOR UNKNOWN INDICATION
     Dosage: 25 MG, ONCE DAILY (STARTED ABOUT 7 DAYS AGO)
     Route: 065
     Dates: start: 202008

REACTIONS (2)
  - Muscular weakness [Unknown]
  - Death [Fatal]

NARRATIVE: CASE EVENT DATE: 20200907
